FAERS Safety Report 12517904 (Version 1)
Quarter: 2016Q2

REPORT INFORMATION
  Report Type: Spontaneous
  Country: US (occurrence: US)
  Receive Date: 20160630
  Receipt Date: 20160630
  Transmission Date: 20160815
  Serious: Yes (Other)
  Sender: FDA-Public Use
  Company Number: US-NOVOPROD-498449

PATIENT
  Age: 64 Year
  Sex: Female

DRUGS (1)
  1. LEVEMIR [Suspect]
     Active Substance: INSULIN DETEMIR
     Indication: PRODUCT USED FOR UNKNOWN INDICATION
     Dosage: UNKNOWN
     Route: 058

REACTIONS (5)
  - Depression [Unknown]
  - Glycosylated haemoglobin increased [Unknown]
  - Amnesia [Unknown]
  - Psychotic disorder [Unknown]
  - Cataract [Unknown]

NARRATIVE: CASE EVENT DATE: 2013
